FAERS Safety Report 18582086 (Version 20)
Quarter: 2023Q1

REPORT INFORMATION
  Report Type: Report from Study
  Country: US (occurrence: US)
  Receive Date: 20201204
  Receipt Date: 20230324
  Transmission Date: 20230417
  Serious: Yes (Other)
  Sender: FDA-Public Use
  Company Number: US-TAKEDA-US202016838

PATIENT
  Sex: Female

DRUGS (3)
  1. HUMAN IMMUNOGLOBULIN G [Suspect]
     Active Substance: HUMAN IMMUNOGLOBULIN G
     Indication: Hypogammaglobulinaemia
     Dosage: UNK
     Route: 042
  2. HUMAN IMMUNOGLOBULIN G [Suspect]
     Active Substance: HUMAN IMMUNOGLOBULIN G
     Indication: Immunodeficiency common variable
  3. BIVIGAM [Suspect]
     Active Substance: HUMAN IMMUNOGLOBULIN G
     Indication: Hypogammaglobulinaemia
     Dosage: UNK
     Route: 042

REACTIONS (31)
  - Epilepsy [Unknown]
  - Device dislocation [Unknown]
  - Haemorrhage [Unknown]
  - Petit mal epilepsy [Unknown]
  - Renal impairment [Unknown]
  - Anaemia [Unknown]
  - Infusion related reaction [Unknown]
  - Diplopia [Unknown]
  - Feeling abnormal [Unknown]
  - Fatigue [Unknown]
  - Catheter site pain [Unknown]
  - Joint injury [Unknown]
  - Herpes zoster [Unknown]
  - Device occlusion [Unknown]
  - Blood insulin decreased [Unknown]
  - Poor venous access [Unknown]
  - Fall [Unknown]
  - Face injury [Unknown]
  - Lung disorder [Unknown]
  - Gait disturbance [Unknown]
  - Illness [Unknown]
  - Insurance issue [Unknown]
  - Fractured coccyx [Unknown]
  - Asthma [Unknown]
  - Vision blurred [Unknown]
  - Malaise [Unknown]
  - Back pain [Unknown]
  - Nausea [Recovered/Resolved]
  - Product dose omission issue [Unknown]
  - Inability to afford medication [Unknown]
  - Inappropriate schedule of product administration [Unknown]
